FAERS Safety Report 4707849-6 (Version None)
Quarter: 2005Q3

REPORT INFORMATION
  Report Type: 
  Country: None (occurrence: None)
  Receive Date: 20050701
  Receipt Date: 20050523
  Transmission Date: 20060218
  Serious: Yes (Other)
  Sender: FDA-Public Use
  Company Number: 2005BH000049

PATIENT
  Age: 43 Year
  Sex: Female

DRUGS (3)
  1. HEPARIN [Suspect]
     Dosage: SEE IMAGE, IV
     Route: 042
  2. CLOPIDOGREL BISULFATE [Suspect]
  3. ASPIRIN [Suspect]

REACTIONS (3)
  - HEPARIN-INDUCED THROMBOCYTOPENIA [None]
  - INTRACARDIAC THROMBUS [None]
  - THROMBOTIC STROKE [None]
